FAERS Safety Report 18790610 (Version 4)
Quarter: 2021Q4

REPORT INFORMATION
  Report Type: Spontaneous
  Country: GB (occurrence: GB)
  Receive Date: 20210126
  Receipt Date: 20211029
  Transmission Date: 20220303
  Serious: Yes (Hospitalization)
  Sender: FDA-Public Use
  Company Number: GB-VERTEX PHARMACEUTICALS-2020-020311

PATIENT
  Sex: Male

DRUGS (6)
  1. ELEXACAFTOR\IVACAFTOR\TEZACAFTOR [Suspect]
     Active Substance: ELEXACAFTOR\IVACAFTOR\TEZACAFTOR
     Indication: Cystic fibrosis
     Dosage: 2 TABS (75 MG IVACAFTOR/50 MG TEZACAFTOR/100 MG ELEXACAFTOR; IN AM
     Route: 048
     Dates: start: 2020, end: 2020
  2. ELEXACAFTOR\IVACAFTOR\TEZACAFTOR [Suspect]
     Active Substance: ELEXACAFTOR\IVACAFTOR\TEZACAFTOR
     Dosage: REDUCED DOSE
     Route: 048
     Dates: start: 2020, end: 2020
  3. ELEXACAFTOR\IVACAFTOR\TEZACAFTOR [Suspect]
     Active Substance: ELEXACAFTOR\IVACAFTOR\TEZACAFTOR
     Dosage: FULL DOSE (2 TABLETS 75MG IVACAFTOR/50MG TEZACAFTOR/100MG ELEXACAFTOR IN AM)
     Route: 048
     Dates: start: 20210121, end: 2021
  4. KALYDECO [Suspect]
     Active Substance: IVACAFTOR
     Indication: Cystic fibrosis
     Dosage: IVACAFTOR 150 MG, IN PM
     Route: 048
     Dates: start: 2020, end: 2020
  5. KALYDECO [Suspect]
     Active Substance: IVACAFTOR
     Dosage: REDUCED
     Route: 048
     Dates: start: 2020, end: 2020
  6. KALYDECO [Suspect]
     Active Substance: IVACAFTOR
     Dosage: FULL DOSE (150 MG IVACAFTOR IN PM)
     Route: 048
     Dates: start: 20210121, end: 2021

REACTIONS (3)
  - Drug eruption [Not Recovered/Not Resolved]
  - Tachycardia [Unknown]
  - Hospitalisation [Unknown]

NARRATIVE: CASE EVENT DATE: 20200101
